FAERS Safety Report 10009256 (Version 2)
Quarter: 2014Q1

REPORT INFORMATION
  Report Type: Spontaneous
  Country: US (occurrence: US)
  Receive Date: 20140313
  Receipt Date: 20140313
  Transmission Date: 20141002
  Serious: No
  Sender: FDA-Public Use
  Company Number: US-GILEAD-2013-0074986

PATIENT
  Age: 77 Year
  Sex: Male

DRUGS (2)
  1. LETAIRIS [Suspect]
     Indication: PRODUCT USED FOR UNKNOWN INDICATION
     Dosage: 10 MG, QD
     Route: 048
     Dates: start: 20120413
  2. LETAIRIS [Suspect]
     Dosage: 5 MG, QD

REACTIONS (3)
  - Diarrhoea [Recovering/Resolving]
  - Blister [Not Recovered/Not Resolved]
  - Local swelling [Recovering/Resolving]
